FAERS Safety Report 18816378 (Version 1)
Quarter: 2021Q1

REPORT INFORMATION
  Report Type: Spontaneous
  Country: US (occurrence: US)
  Receive Date: 20210201
  Receipt Date: 20210201
  Transmission Date: 20210419
  Serious: Yes (Hospitalization, Disabling)
  Sender: FDA-Public Use
  Company Number: None

PATIENT
  Age: 67 Year
  Sex: Female
  Weight: 70 kg

DRUGS (1)
  1. HELLO BELLO HAND SANITIZER [Suspect]
     Active Substance: ALCOHOL
     Indication: COVID-19 PROPHYLAXIS

REACTIONS (10)
  - Anion gap [None]
  - Blindness [None]
  - Intentional product misuse [None]
  - Product formulation issue [None]
  - Metabolic acidosis [None]
  - Confusional state [None]
  - Blood methanol increased [None]
  - Magnetic resonance imaging abnormal [None]
  - Optic nerve disorder [None]
  - Headache [None]

NARRATIVE: CASE EVENT DATE: 20210129
